FAERS Safety Report 9611338 (Version 1)
Quarter: 2013Q4

REPORT INFORMATION
  Report Type: Spontaneous
  Country: US (occurrence: US)
  Receive Date: 20131010
  Receipt Date: 20131010
  Transmission Date: 20140711
  Serious: No
  Sender: FDA-Public Use
  Company Number: US-009507513-1310USA003303

PATIENT
  Age: 59 Year
  Sex: Male

DRUGS (11)
  1. VICTRELIS [Suspect]
     Indication: HEPATITIS C
     Dosage: 800 MG, TID
     Route: 048
     Dates: start: 20130829, end: 20130914
  2. REBETOL [Suspect]
  3. PEGINTRON [Suspect]
  4. AMLODIPINE [Concomitant]
  5. GLIPIZIDE [Concomitant]
  6. METHAZOLAMIDE [Concomitant]
  7. MIRTAZAPINE [Concomitant]
  8. HYDRALAZINE [Concomitant]
  9. LORTAB [Concomitant]
  10. LANTUS [Concomitant]
  11. PHENERGAN (PROMETHAZINE HYDROCHLORIDE) [Concomitant]

REACTIONS (2)
  - Nausea [Recovered/Resolved]
  - Vomiting [Recovered/Resolved]
